FAERS Safety Report 5256692-0 (Version None)
Quarter: 2007Q1

REPORT INFORMATION
  Report Type: 
  Country: None (occurrence: None)
  Receive Date: 20070306
  Receipt Date: 20070223
  Transmission Date: 20070707
  Serious: Yes (Other)
  Sender: FDA-Public Use
  Company Number: JP-PFIZER INC-2007013619

PATIENT
  Age: 76 Year
  Sex: Male

DRUGS (8)
  1. NORVASC [Suspect]
     Route: 048
  2. EXCEGRAN [Concomitant]
     Dosage: DAILY DOSE:200MG
     Route: 048
  3. SIGMART [Concomitant]
     Dosage: DAILY DOSE:5MG
     Route: 048
  4. MEVALOTIN [Concomitant]
     Dosage: DAILY DOSE:5MG
     Route: 048
  5. GANATON [Concomitant]
     Dosage: DAILY DOSE:150MG
     Route: 048
  6. GASCON [Concomitant]
     Dosage: DAILY DOSE:120MG
     Route: 048
  7. KETOPROFEN [Concomitant]
     Route: 062
  8. MOBILAT [Concomitant]
     Route: 062

REACTIONS (1)
  - BLOOD POTASSIUM INCREASED [None]
